FAERS Safety Report 8844385 (Version 1)
Quarter: 2012Q4

REPORT INFORMATION
  Report Type: 
  Country: MX (occurrence: MX)
  Receive Date: 20121017
  Receipt Date: 20121017
  Transmission Date: 20130627
  Serious: Yes (Hospitalization)
  Sender: FDA-Public Use
  Company Number: PHHY2012MX091905

PATIENT
  Age: 78 Year
  Sex: Female

DRUGS (1)
  1. CO-DIOVAN [Suspect]
     Indication: HYPERTENSION
     Dosage: 1 tablet (160/12.5 mg) per day
     Dates: end: 201209

REACTIONS (2)
  - Pancreatitis [Not Recovered/Not Resolved]
  - Renal disorder [Not Recovered/Not Resolved]
